FAERS Safety Report 9241344 (Version 3)
Quarter: 2013Q2

REPORT INFORMATION
  Report Type: Spontaneous
  Country: US (occurrence: US)
  Receive Date: 20130419
  Receipt Date: 20130627
  Transmission Date: 20140414
  Serious: Yes (Hospitalization)
  Sender: FDA-Public Use
  Company Number: US-BIOGENIDEC-2013BI034627

PATIENT
  Age: 44 Year
  Sex: Female

DRUGS (10)
  1. TYSABRI [Suspect]
     Indication: MULTIPLE SCLEROSIS
     Route: 042
     Dates: start: 20111025, end: 20130425
  2. LYRICA [Concomitant]
     Indication: ARTHRALGIA
  3. LYRICA [Concomitant]
     Indication: FIBROMYALGIA
  4. ROCEPHIN [Concomitant]
     Indication: PNEUMONIA
  5. MUCINEX [Concomitant]
     Indication: UPPER RESPIRATORY TRACT INFECTION
  6. BREATHING TREATMENT [Concomitant]
     Indication: PNEUMONIA
  7. LEVAQUIN [Concomitant]
     Indication: UPPER RESPIRATORY TRACT INFECTION
  8. LEVAQUIN [Concomitant]
     Indication: PNEUMONIA
  9. INHALER, NOS [Concomitant]
     Indication: PNEUMONIA
  10. INHALER, NOS [Concomitant]
     Indication: UPPER RESPIRATORY TRACT INFECTION

REACTIONS (2)
  - Depression [Recovered/Resolved]
  - Upper respiratory tract infection [Recovered/Resolved]
